FAERS Safety Report 5707788-8 (Version None)
Quarter: 2008Q2

REPORT INFORMATION
  Report Type: 
  Country: None (occurrence: None)
  Receive Date: 20080417
  Receipt Date: 20080407
  Transmission Date: 20081010
  Serious: Yes (Other)
  Sender: FDA-Public Use
  Company Number: US-JNJFOC-20080300073

PATIENT
  Sex: Female

DRUGS (8)
  1. FENTANYL TRANSDERMAL SYSTEM [Suspect]
     Indication: PAIN
     Route: 062
  2. NEURONTIN [Concomitant]
  3. XANAX [Concomitant]
  4. LEVOXYL [Concomitant]
  5. MAXZIDE [Concomitant]
  6. TOPROL-XL [Concomitant]
  7. XOPENEX [Concomitant]
  8. ASPIRIN [Concomitant]

REACTIONS (5)
  - CONTUSION [None]
  - HYPERHIDROSIS [None]
  - INSOMNIA [None]
  - MOVEMENT DISORDER [None]
  - WITHDRAWAL SYNDROME [None]
